FAERS Safety Report 11072666 (Version 3)
Quarter: 2015Q2

REPORT INFORMATION
  Report Type: Report from Study
  Country: CA (occurrence: CA)
  Receive Date: 20150428
  Receipt Date: 20150619
  Transmission Date: 20150821
  Serious: Yes (Other)
  Sender: FDA-Public Use
  Company Number: PHHY2012CA018523

PATIENT
  Age: 38 Year
  Sex: Male

DRUGS (1)
  1. SANDOSTATIN LAR DEPOT [Suspect]
     Active Substance: OCTREOTIDE ACETATE
     Indication: ACROMEGALY
     Dosage: 30 MG, EREY 4 WEEKS
     Route: 030
     Dates: start: 20080425

REACTIONS (7)
  - Heart rate increased [Unknown]
  - Inappropriate schedule of drug administration [Unknown]
  - Muscular weakness [Unknown]
  - Acoustic neuroma [Not Recovered/Not Resolved]
  - Sinusitis [Unknown]
  - Blood pressure increased [Unknown]
  - Headache [Unknown]

NARRATIVE: CASE EVENT DATE: 20120217
